FAERS Safety Report 9457759 (Version 1)
Quarter: 2013Q3

REPORT INFORMATION
  Report Type: Spontaneous
  Country: GB (occurrence: GB)
  Receive Date: 20130814
  Receipt Date: 20130814
  Transmission Date: 20140515
  Serious: Yes (Hospitalization)
  Sender: FDA-Public Use
  Company Number: GB-TEVA-423518ISR

PATIENT
  Age: 78 Year
  Sex: Female

DRUGS (10)
  1. RAMIPRIL [Suspect]
     Dosage: 1.25 MILLIGRAM DAILY;
     Route: 048
     Dates: start: 2011, end: 20130717
  2. GABAPENTIN [Suspect]
     Indication: NEURALGIA
     Dosage: 300 MILLIGRAM DAILY;
     Route: 048
     Dates: start: 20130624, end: 20130717
  3. FUROSEMIDE [Suspect]
     Dosage: 40 MILLIGRAM DAILY; TAKEN THE MORNING
     Route: 048
     Dates: start: 2008, end: 20130717
  4. CITALOPRAM [Concomitant]
     Dosage: 40 MILLIGRAM DAILY; TAKEN IN THE MORNING
     Route: 048
  5. DIGOXIN [Concomitant]
     Dosage: 125 MICROGRAM DAILY;
     Route: 048
  6. LANSOPRAZOLE [Concomitant]
     Dosage: 30 MILLIGRAM DAILY; TAKEN IN THE MORNING
  7. SIMVASTATIN [Concomitant]
     Dosage: 40 MILLIGRAM DAILY; TAKEN AT NIGHT
  8. TEMAZEPAM [Concomitant]
     Dosage: 10 MILLIGRAM DAILY; TAKEN AT NIGHT
     Route: 048
  9. WARFARIN [Concomitant]
     Dosage: AS PER INR
     Route: 048
  10. HYPROMELLOSE [Concomitant]
     Dosage: AT NIGHT (NOCTE)
     Route: 061

REACTIONS (8)
  - Dehydration [Unknown]
  - Infection [Unknown]
  - Somnolence [Recovering/Resolving]
  - Renal failure acute [Not Recovered/Not Resolved]
  - Condition aggravated [Not Recovered/Not Resolved]
  - Drug level increased [Unknown]
  - Urosepsis [Unknown]
  - Sepsis [Unknown]
